FAERS Safety Report 10518501 (Version 3)
Quarter: 2014Q4

REPORT INFORMATION
  Report Type: Spontaneous
  Country: US (occurrence: US)
  Receive Date: 20141015
  Receipt Date: 20141114
  Transmission Date: 20150528
  Serious: Yes (Hospitalization, Other)
  Sender: FDA-Public Use
  Company Number: US-PFIZER INC-2014282806

PATIENT
  Age: 35 Year
  Sex: Male

DRUGS (5)
  1. MIRTAZAPINE. [Concomitant]
     Active Substance: MIRTAZAPINE
     Dosage: 15 MG, 1X/DAY
     Dates: start: 20140820
  2. LYRICA [Suspect]
     Active Substance: PREGABALIN
     Indication: NERVE INJURY
  3. LYRICA [Suspect]
     Active Substance: PREGABALIN
     Indication: PAIN
     Dosage: 25 MG, 2 TO 3 TIMES PER DAY
     Dates: start: 20141002, end: 20141007
  4. NEURONTIN [Concomitant]
     Active Substance: GABAPENTIN
     Dosage: 300-400MG PER DAY
     Dates: start: 20140912, end: 20141001
  5. NEURONTIN [Concomitant]
     Active Substance: GABAPENTIN
     Dosage: TAPERING OFF
     Dates: start: 20141002, end: 20141010

REACTIONS (4)
  - Abdominal distension [Not Recovered/Not Resolved]
  - Vision blurred [Unknown]
  - Dry eye [Unknown]
  - Hypophagia [Unknown]

NARRATIVE: CASE EVENT DATE: 201410
